FAERS Safety Report 14314838 (Version 2)
Quarter: 2018Q1

REPORT INFORMATION
  Report Type: Spontaneous
  Country: JP (occurrence: JP)
  Receive Date: 20171221
  Receipt Date: 20180301
  Transmission Date: 20180509
  Serious: Yes (Other)
  Sender: FDA-Public Use
  Company Number: JP-BAYER-2017-243495

PATIENT
  Age: 37 Year
  Sex: Female
  Weight: 48 kg

DRUGS (3)
  1. SOLANAX [Concomitant]
     Active Substance: ALPRAZOLAM
     Dosage: 13 DF, ONCE
     Route: 048
     Dates: start: 20171112
  2. YAZ [Suspect]
     Active Substance: DROSPIRENONE\ETHINYL ESTRADIOL
     Indication: PREMENSTRUAL SYNDROME
     Dosage: 1 DF, QD
     Route: 048
     Dates: start: 20170924, end: 20171114
  3. LEXAPRO [Concomitant]
     Active Substance: ESCITALOPRAM OXALATE
     Indication: DYSMENORRHOEA
     Dosage: 5 MG, QD
     Route: 048
     Dates: start: 20160906

REACTIONS (12)
  - Depressed mood [Recovered/Resolved]
  - Suicide attempt [None]
  - Hemianaesthesia [Recovered/Resolved]
  - Insomnia [Recovering/Resolving]
  - Off label use [None]
  - Suicidal ideation [Recovered/Resolved]
  - Affect lability [Recovered/Resolved]
  - Premenstrual syndrome [Recovered/Resolved]
  - Product use in unapproved indication [None]
  - Fibrin D dimer increased [Recovering/Resolving]
  - Loss of consciousness [Recovered/Resolved]
  - Irritability [Recovered/Resolved]

NARRATIVE: CASE EVENT DATE: 20170924
